FAERS Safety Report 5633888-7 (Version None)
Quarter: 2008Q1

REPORT INFORMATION
  Report Type: 
  Country: None (occurrence: None)
  Receive Date: 20080221
  Receipt Date: 20080201
  Transmission Date: 20080703
  Serious: No
  Sender: FDA-Public Use
  Company Number: US-BOEHRINGER INGELHEIM GMBH, GERMANY-2008-BP-01584BP

PATIENT
  Sex: Male

DRUGS (5)
  1. FLOMAX [Suspect]
     Indication: URINARY RETENTION
     Route: 048
     Dates: start: 20080101
  2. AVODART [Concomitant]
     Indication: URINARY RETENTION
  3. TYLENOL (CAPLET) [Concomitant]
     Indication: ARTHRITIS
  4. PLAVIX [Concomitant]
     Indication: PROPHYLAXIS
  5. ECOTRIN [Concomitant]

REACTIONS (1)
  - HEART RATE INCREASED [None]
